FAERS Safety Report 7605277 (Version 5)
Quarter: 2012Q4

REPORT INFORMATION
  Report Type: 
  Country: JP (occurrence: US)
  Receive Date: 20100924
  Receipt Date: 20121018
  Transmission Date: 20130627
  Serious: Yes (Other)
  Sender: FDA-Public Use
  Company Number: US-JNJFOC-20100804734

PATIENT
  Age: 42 None
  Sex: Female

DRUGS (4)
  1. LEVAQUIN [Suspect]
     Indication: KIDNEY INFECTION
     Route: 048
     Dates: start: 2007, end: 2007
  2. LEVAQUIN [Suspect]
     Indication: ABDOMINAL PAIN
     Route: 048
  3. LEVAQUIN [Suspect]
     Indication: FLANK PAIN
     Route: 042
  4. LEVAQUIN [Suspect]
     Indication: ABDOMINAL PAIN
     Route: 042

REACTIONS (3)
  - Musculoskeletal disorder [Unknown]
  - Tendon rupture [Unknown]
  - Tendon rupture [Unknown]
